FAERS Safety Report 6174678-9 (Version None)
Quarter: 2009Q2

REPORT INFORMATION
  Report Type: 
  Country: None (occurrence: None)
  Receive Date: 20090424
  Receipt Date: 20090216
  Transmission Date: 20091009
  Serious: No
  Sender: FDA-Public Use
  Company Number: ALL1-2009-00417

PATIENT
  Age: 58 Year
  Sex: Female
  Weight: 67.1 kg

DRUGS (8)
  1. VYVANSE [Suspect]
     Indication: ASTHENIA
     Dosage: 30 MG, 1X/DAY:QD, ORAL
     Route: 048
     Dates: start: 20090214
  2. WELLBUTRIN [Concomitant]
  3. LOPRESSOR [Concomitant]
  4. ZOCOR [Concomitant]
  5. LEVOTHROID [Concomitant]
  6. VASOTEC [Concomitant]
  7. FEMARA [Concomitant]
  8. PREVACID [Concomitant]

REACTIONS (2)
  - DRUG INEFFECTIVE FOR UNAPPROVED INDICATION [None]
  - OFF LABEL USE [None]
